FAERS Safety Report 7878784-X (Version None)
Quarter: 2011Q4

REPORT INFORMATION
  Report Type: 
  Country: None (occurrence: None)
  Receive Date: 20111028
  Receipt Date: 20111018
  Transmission Date: 20120403
  Serious: Yes (Hospitalization)
  Sender: FDA-Public Use
  Company Number: JPI-P-017590

PATIENT
  Age: 53 Year
  Sex: Female
  Weight: 95.2554 kg

DRUGS (9)
  1. DOXEPIN [Suspect]
     Indication: INSOMNIA
  2. LEVOTHYROXINE SODIUM [Concomitant]
  3. VITAMIN D [Concomitant]
  4. ZALEPLON [Concomitant]
  5. UNSPECIFIED ANTIDEPPRESSANTS [Suspect]
     Indication: PRODUCT USED FOR UNKNOWN INDICATION
  6. IODINE [Concomitant]
  7. ZOLPIDEM TARTRATE [Suspect]
     Indication: MIDDLE INSOMNIA
     Dosage: (10 MG, QHS);
  8. DIPHENHYDRAMINE HCL [Suspect]
     Indication: PRODUCT USED FOR UNKNOWN INDICATION
  9. XYREM [Suspect]
     Indication: FIBROMYALGIA
     Dosage: 6 GM (3 GM, 2 IN 1 D), ORAL; ( , 2 IN 1 D), ORAL; (6 GM), ORAL
     Route: 048
     Dates: start: 20051125

REACTIONS (9)
  - APATHY [None]
  - SOMNOLENCE [None]
  - SPINAL DISORDER [None]
  - SEDATION [None]
  - SOMNAMBULISM [None]
  - DEPRESSION [None]
  - EMOTIONAL POVERTY [None]
  - WEIGHT DECREASED [None]
  - INSOMNIA [None]
